FAERS Safety Report 4740843-8 (Version None)
Quarter: 2005Q3

REPORT INFORMATION
  Report Type: 
  Country: None (occurrence: None)
  Receive Date: 20050810
  Receipt Date: 20041104
  Transmission Date: 20060218
  Serious: No
  Sender: FDA-Public Use
  Company Number: US-GLAXOSMITHKLINE-A0532610A

PATIENT
  Age: 76 Year
  Sex: Female

DRUGS (6)
  1. TAGAMET HB 200 [Suspect]
     Dates: end: 20041104
  2. COZAAR [Concomitant]
  3. TOPROL-XL [Concomitant]
  4. ADVIL [Concomitant]
  5. TYLENOL (CAPLET) [Concomitant]
  6. PREDNISONE [Concomitant]

REACTIONS (3)
  - ASTHENIA [None]
  - DIARRHOEA [None]
  - NAUSEA [None]
